FAERS Safety Report 6062511-5 (Version None)
Quarter: 2009Q1

REPORT INFORMATION
  Report Type: 
  Country: None (occurrence: None)
  Receive Date: 20090202
  Receipt Date: 20090202
  Transmission Date: 20090719
  Serious: Yes (Other)
  Sender: FDA-Public Use
  Company Number: None

PATIENT
  Age: 52 Year
  Sex: Female
  Weight: 54.4316 kg

DRUGS (1)
  1. AMBIEN CR [Suspect]
     Indication: INSOMNIA
     Dosage: ONE TABLET AT BEDTIME ONCE A NIGHT PO
     Route: 048
     Dates: start: 20080201, end: 20090109

REACTIONS (6)
  - EYE PAIN [None]
  - FEELING ABNORMAL [None]
  - HALLUCINATION [None]
  - PHOTOPHOBIA [None]
  - THYROID FUNCTION TEST ABNORMAL [None]
  - VISUAL IMPAIRMENT [None]
